FAERS Safety Report 25434334 (Version 1)
Quarter: 2025Q2

REPORT INFORMATION
  Report Type: Spontaneous
  Country: US (occurrence: US)
  Receive Date: 20250613
  Receipt Date: 20250613
  Transmission Date: 20250716
  Serious: Yes (Life-Threatening, Hospitalization, Other)
  Sender: UNITED THERAPEUTICS
  Company Number: US-UNITED THERAPEUTICS-UNT-2025-019842

PATIENT
  Age: 10 Year
  Sex: Female

DRUGS (16)
  1. REMODULIN [Suspect]
     Active Substance: TREPROSTINIL
     Indication: Pulmonary arterial hypertension
     Route: 041
  2. REMODULIN [Suspect]
     Active Substance: TREPROSTINIL
     Indication: Pulmonary arterial hypertension
  3. RITUXIMAB [Suspect]
     Active Substance: RITUXIMAB
     Indication: Systemic scleroderma
  4. TADALAFIL [Concomitant]
     Active Substance: TADALAFIL
     Indication: Pulmonary arterial hypertension
  5. AMBRISENTAN [Concomitant]
     Active Substance: AMBRISENTAN
     Indication: Pulmonary arterial hypertension
  6. MYCOPHENOLATE MOFETIL [Concomitant]
     Active Substance: MYCOPHENOLATE MOFETIL
     Indication: Systemic scleroderma
  7. METHYLPREDNISOLONE [Concomitant]
     Active Substance: METHYLPREDNISOLONE
     Indication: Systemic scleroderma
  8. ILOPROST [Concomitant]
     Active Substance: ILOPROST
     Indication: Product used for unknown indication
  9. NITRIC OXIDE [Concomitant]
     Active Substance: NITRIC OXIDE
     Indication: Product used for unknown indication
  10. OBINUTUZUMAB [Concomitant]
     Active Substance: OBINUTUZUMAB
     Indication: Systemic scleroderma
  11. Immunoglobulin [Concomitant]
     Indication: Product used for unknown indication
  12. OXYGEN [Concomitant]
     Active Substance: OXYGEN
     Indication: Haemodynamic instability
  13. OXYGEN [Concomitant]
     Active Substance: OXYGEN
     Indication: Pyrexia
  14. OXYGEN [Concomitant]
     Active Substance: OXYGEN
     Indication: Shock
  15. OXYGEN [Concomitant]
     Active Substance: OXYGEN
     Indication: Tachycardia
  16. OXYGEN [Concomitant]
     Active Substance: OXYGEN
     Indication: Hypotension

REACTIONS (10)
  - Shock [Unknown]
  - Tachycardia [Not Recovered/Not Resolved]
  - Hypotension [Unknown]
  - Inflammation [Not Recovered/Not Resolved]
  - Pulmonary haemorrhage [Unknown]
  - Pulmonary vasculitis [Unknown]
  - Feeding intolerance [Unknown]
  - Infusion site pain [Unknown]
  - Pyrexia [Unknown]
  - Haemodynamic instability [Unknown]
